FAERS Safety Report 8298682 (Version 2)
Quarter: 2013Q2

REPORT INFORMATION
  Report Type: Report from Study
  Country: ES (occurrence: ES)
  Receive Date: 20111219
  Receipt Date: 20130426
  Transmission Date: 20140414
  Serious: Yes (Hospitalization)
  Sender: FDA-Public Use
  Company Number: ES-MPIJNJ-2011-06340

PATIENT
  Sex: 0

DRUGS (7)
  1. VELCADE [Suspect]
     Indication: PLASMA CELL MYELOMA
     Dosage: 2.1 MG, CYCLIC
     Route: 065
     Dates: start: 20110808, end: 20111114
  2. REVLIMID [Suspect]
     Indication: PLASMA CELL MYELOMA
     Dosage: 5 MG, CYCLIC
     Route: 065
     Dates: start: 20110711, end: 20111204
  3. DEXAMETHASONE [Suspect]
     Indication: PLASMA CELL MYELOMA
     Dosage: 20 MG, CYCLIC
     Route: 065
     Dates: start: 20110711, end: 20111128
  4. PREDNISONE [Suspect]
     Indication: PLASMA CELL MYELOMA
     Dosage: 100 MG, CYCLIC
     Route: 065
     Dates: start: 20110808, end: 20111027
  5. MELPHALAN [Suspect]
     Indication: PLASMA CELL MYELOMA
     Dosage: 15 MG, CYCLIC
     Route: 065
     Dates: start: 20110808, end: 20111027
  6. DIGOXIN [Suspect]
     Indication: HYPERTENSION
     Dosage: 0.25 MG, UNK
     Route: 065
  7. MICARDIS PLUS [Suspect]
     Indication: HYPERTENSION
     Dosage: 80 MG, UNK
     Route: 065

REACTIONS (6)
  - Toxicity to various agents [Recovered/Resolved]
  - Vomiting [None]
  - Dizziness [None]
  - Metabolic alkalosis [None]
  - Hypokalaemia [None]
  - Blood creatinine increased [None]
